FAERS Safety Report 18468512 (Version 2)
Quarter: 2020Q4

REPORT INFORMATION
  Report Type: Spontaneous
  Country: NL (occurrence: NL)
  Receive Date: 20201105
  Receipt Date: 20201112
  Transmission Date: 20210114
  Serious: Yes (Other)
  Sender: FDA-Public Use
  Company Number: NL-ROCHE-2707054

PATIENT
  Age: 55 Year
  Sex: Male
  Weight: 89 kg

DRUGS (14)
  1. SARIDONE [Concomitant]
     Active Substance: CAFFEINE\PHENACETIN\PROPYPHENAZONE
  2. LISINOPRIL. [Concomitant]
     Active Substance: LISINOPRIL
     Dosage: 1 D.D. 1
  3. ACETYLSALICYLZUUR [Concomitant]
     Active Substance: ASPIRIN
     Dosage: 1DD1
  4. CARBAMAZEPINE. [Concomitant]
     Active Substance: CARBAMAZEPINE
     Dosage: 2 D.D. 2
  5. SYMMETREL [Concomitant]
     Active Substance: AMANTADINE HYDROCHLORIDE
     Dosage: 3DD1
  6. CANNABIS [Concomitant]
     Active Substance: CANNABIS SATIVA SUBSP. INDICA TOP
  7. MAGNESIUM CITRAT [Concomitant]
  8. METAMUCIL [Concomitant]
     Active Substance: PLANTAGO SEED
  9. ATORVASTATINE [Concomitant]
     Active Substance: ATORVASTATIN
     Dosage: 1 D.D. 1
  10. METOPROLOL. [Concomitant]
     Active Substance: METOPROLOL
  11. BRILIQUE [Concomitant]
     Active Substance: TICAGRELOR
     Dosage: 2DD1
  12. LYRICA [Concomitant]
     Active Substance: PREGABALIN
     Dosage: 3 D.D. 2
  13. OMEPRAZOLE. [Concomitant]
     Active Substance: OMEPRAZOLE
     Dosage: 1 D.D. 1
  14. OCRELIZUMAB. [Suspect]
     Active Substance: OCRELIZUMAB
     Indication: MULTIPLE SCLEROSIS
     Route: 065
     Dates: start: 201812

REACTIONS (1)
  - Myocardial infarction [Recovering/Resolving]

NARRATIVE: CASE EVENT DATE: 20201011
